FAERS Safety Report 7620036-7 (Version None)
Quarter: 2011Q3

REPORT INFORMATION
  Report Type: 
  Country: None (occurrence: None)
  Receive Date: 20110719
  Receipt Date: 20110713
  Transmission Date: 20111222
  Serious: Yes (Other)
  Sender: FDA-Public Use
  Company Number: US-PFIZER INC-2011159063

PATIENT
  Sex: Male
  Weight: 77.098 kg

DRUGS (2)
  1. LYRICA [Suspect]
     Indication: NEURALGIA
     Dosage: 75 MG, 2X/DAY
     Route: 048
     Dates: start: 20110711, end: 20110713
  2. PREDNISONE [Concomitant]
     Dosage: UNK

REACTIONS (2)
  - BLISTER [None]
  - RASH [None]
